FAERS Safety Report 8595398-7 (Version None)
Quarter: 2012Q3

REPORT INFORMATION
  Report Type: 
  Country: None (occurrence: None)
  Receive Date: 20120815
  Receipt Date: 20120514
  Transmission Date: 20120928
  Serious: No
  Sender: FDA-Public Use
  Company Number: US-BRISTOL-MYERS SQUIBB COMPANY-16591349

PATIENT
  Sex: Male

DRUGS (2)
  1. ONGLYZA [Suspect]
  2. GLYBURIDE [Concomitant]

REACTIONS (1)
  - OEDEMA PERIPHERAL [None]
